FAERS Safety Report 10079500 (Version 3)
Quarter: 2014Q2

REPORT INFORMATION
  Report Type: Spontaneous
  Country: JP (occurrence: JP)
  Receive Date: 20140415
  Receipt Date: 20140506
  Transmission Date: 20141212
  Serious: Yes (Other)
  Sender: FDA-Public Use
  Company Number: JP-ASTRAZENECA-2014SE06437

PATIENT
  Age: 83 Year
  Sex: Male
  Weight: 47 kg

DRUGS (10)
  1. SYMBICORT TURBUHALER [Suspect]
     Indication: ASTHMA
     Dosage: 2 DF, TWO TIMES A DAY
     Route: 055
     Dates: start: 20140123, end: 20140124
  2. SENNOSIDE [Concomitant]
     Indication: CONSTIPATION
     Route: 048
     Dates: start: 20110131
  3. SUNNYASE [Concomitant]
     Indication: GASTRITIS
     Route: 048
     Dates: start: 20120405
  4. LANSOPRAZOLE [Concomitant]
     Indication: GASTROOESOPHAGEAL REFLUX DISEASE
     Route: 048
     Dates: start: 20110131
  5. PRAZAXA [Concomitant]
     Indication: ATRIAL FIBRILLATION
     Route: 048
     Dates: start: 20130713
  6. LUPRAC [Concomitant]
     Indication: OEDEMA PERIPHERAL
     Route: 048
     Dates: start: 20130213, end: 20140124
  7. LUPRAC [Concomitant]
     Indication: OEDEMA PERIPHERAL
     Route: 048
  8. TOWATHIEM [Concomitant]
     Indication: UPPER RESPIRATORY TRACT INFLAMMATION
     Dosage: 1 GRAM, AS REQUIRED, FIVE DAYS
     Route: 065
  9. SEKINARIN [Concomitant]
     Indication: ASTHMA
     Route: 062
     Dates: start: 20140122
  10. ANTOBRON L [Concomitant]
     Indication: ASTHMA
     Route: 048
     Dates: start: 20140122

REACTIONS (6)
  - Cardiac failure [Recovering/Resolving]
  - Wheezing [Unknown]
  - Oedema peripheral [Recovered/Resolved]
  - Weight increased [Recovered/Resolved]
  - Face oedema [Recovered/Resolved]
  - Hypertension [Recovered/Resolved]
